FAERS Safety Report 8791491 (Version 1)
Quarter: 2012Q4

REPORT INFORMATION
  Report Type: Spontaneous
  Country: US (occurrence: None)
  Receive Date: 20120912
  Receipt Date: 20120912
  Transmission Date: 20130627
  Serious: Yes (Disabling, Other)
  Sender: FDA-Public Use
  Company Number: ACO_31826_2012

PATIENT
  Sex: Female

DRUGS (1)
  1. AMPYRA [Suspect]

REACTIONS (2)
  - Dysuria [None]
  - Abdominal pain upper [None]
